FAERS Safety Report 7183516-7 (Version None)
Quarter: 2010Q4

REPORT INFORMATION
  Report Type: 
  Country: None (occurrence: None)
  Receive Date: 20101222
  Receipt Date: 20101210
  Transmission Date: 20110411
  Serious: Yes (Life-Threatening, Hospitalization)
  Sender: FDA-Public Use
  Company Number: PHHY2010JP82263

PATIENT
  Age: 81 Year
  Sex: Female
  Weight: 67 kg

DRUGS (7)
  1. DIOVAN [Suspect]
     Indication: HYPERTENSION
     Dosage: 80 MG, BID
     Route: 048
     Dates: end: 20101128
  2. VOLTAREN [Suspect]
     Dosage: UNK
     Dates: end: 20101125
  3. FLUVASTATIN [Suspect]
     Indication: HYPERTENSION
     Dosage: 30 MG ONCE DAILY
     Route: 048
     Dates: end: 20101128
  4. PARIET [Suspect]
     Indication: GASTROOESOPHAGEAL REFLUX DISEASE
     Dosage: 10 MG DAILY
     Route: 048
     Dates: end: 20101128
  5. LOXOPROFEN [Suspect]
     Indication: BACK PAIN
     Dosage: 120 MG DAILY
     Route: 048
     Dates: end: 20101128
  6. LANSOPRAZOLE [Suspect]
     Indication: GASTROOESOPHAGEAL REFLUX DISEASE
     Dosage: 15 MG DAILY
     Route: 048
     Dates: end: 20101128
  7. VONAFEC [Suspect]
     Indication: BACK PAIN
     Dosage: 25 MG DAILY
     Dates: end: 20101128

REACTIONS (7)
  - ASPARTATE AMINOTRANSFERASE INCREASED [None]
  - BLOOD ALKALINE PHOSPHATASE INCREASED [None]
  - BLOOD LACTATE DEHYDROGENASE INCREASED [None]
  - HYPOXIA [None]
  - INTERSTITIAL LUNG DISEASE [None]
  - PALPITATIONS [None]
  - PYREXIA [None]
